FAERS Safety Report 6254728-1 (Version None)
Quarter: 2009Q3

REPORT INFORMATION
  Report Type: 
  Country: None (occurrence: None)
  Receive Date: 20090702
  Receipt Date: 20090625
  Transmission Date: 20100115
  Serious: Yes (Death, Hospitalization)
  Sender: FDA-Public Use
  Company Number: FR-PFIZER INC-2009231912

PATIENT
  Age: 73 Year

DRUGS (9)
  1. VFEND [Suspect]
     Indication: ASPERGILLOSIS
     Dosage: 200 MG, 2X/DAY
     Route: 048
     Dates: start: 20090415, end: 20090520
  2. XANAX [Suspect]
     Indication: ANXIETY
     Dosage: UNK MG, UNK
     Route: 048
     Dates: end: 20090520
  3. EFFERALGAN CODEINE [Suspect]
     Dosage: UNK
     Route: 048
     Dates: end: 20090520
  4. STAGID [Concomitant]
     Indication: TYPE 2 DIABETES MELLITUS
     Dosage: 700 MG, 3X/DAY
     Route: 048
     Dates: end: 20090520
  5. ISOPTIN [Concomitant]
     Indication: HYPERTENSION
     Dosage: 120 MG, 3X/DAY
     Route: 048
     Dates: end: 20090520
  6. GLUCOR [Concomitant]
     Indication: TYPE 2 DIABETES MELLITUS
     Dosage: 100 MG, 3X/DAY
     Route: 048
     Dates: end: 20090520
  7. DEROXAT [Concomitant]
     Dosage: 10 MG, 1X/DAY (IN THE MORNING)
     Route: 048
     Dates: end: 20090520
  8. ATACAND [Concomitant]
     Indication: HYPERTENSION
     Dosage: 8 MG, 1X/DAY (IN THE MORNING)
     Route: 048
     Dates: end: 20090520
  9. DUPHALAC [Concomitant]
     Indication: CONSTIPATION
     Dosage: UNK
     Route: 048
     Dates: end: 20090520

REACTIONS (1)
  - RESPIRATORY DISTRESS [None]
